FAERS Safety Report 9201362 (Version 1)
Quarter: 2013Q2

REPORT INFORMATION
  Report Type: Spontaneous
  Country: US (occurrence: US)
  Receive Date: 20130401
  Receipt Date: 20130401
  Transmission Date: 20140414
  Serious: Yes (Hospitalization, Other)
  Sender: FDA-Public Use
  Company Number: US-BRISTOL-MYERS SQUIBB COMPANY-18707943

PATIENT
  Sex: Male

DRUGS (2)
  1. REYATAZ [Suspect]
     Indication: HIV INFECTION
     Route: 065
  2. EMTRIVA [Interacting]
     Indication: HIV INFECTION
     Route: 065
     Dates: start: 20130225

REACTIONS (3)
  - Neutrophilia [Unknown]
  - Drug interaction [Unknown]
  - Night sweats [Unknown]
